FAERS Safety Report 24269366 (Version 3)
Quarter: 2024Q3

REPORT INFORMATION
  Report Type: Report from Study
  Country: CN (occurrence: CN)
  Receive Date: 20240830
  Receipt Date: 20240927
  Transmission Date: 20241016
  Serious: Yes (Hospitalization, Other)
  Sender: RANBAXY
  Company Number: CN-SUN PHARMACEUTICAL INDUSTRIES LTD-2024R1-464812

PATIENT
  Age: 83 Year
  Sex: Male
  Weight: 66 kg

DRUGS (8)
  1. SONIDEGIB [Suspect]
     Active Substance: SONIDEGIB
     Indication: Basal cell carcinoma
     Dosage: 200 MILLIGRAM, QD
     Route: 048
     Dates: start: 20231013, end: 20240106
  2. SONIDEGIB [Suspect]
     Active Substance: SONIDEGIB
     Dosage: 200 MILLIGRAM, QD
     Route: 048
     Dates: start: 20240120, end: 20240123
  3. SONIDEGIB [Suspect]
     Active Substance: SONIDEGIB
     Dosage: 200 MILLIGRAM, QOD
     Route: 048
     Dates: start: 20240205
  4. Nao de sheng pill [Concomitant]
     Indication: Angiosclerosis
     Dosage: UNK, TID
     Route: 048
     Dates: start: 20231117
  5. Qizhongluo [Concomitant]
     Indication: Angiosclerosis
     Dosage: UNK, TID
     Route: 048
     Dates: start: 20231117
  6. CALCIUM CARBONATE\CHOLECALCIFEROL [Concomitant]
     Active Substance: CALCIUM CARBONATE\CHOLECALCIFEROL
     Indication: Muscle spasms
     Dosage: UNK
     Route: 065
     Dates: start: 20231130
  7. CALCITRIOL [Concomitant]
     Active Substance: CALCITRIOL
     Indication: Muscle spasms
     Dosage: UNK
     Route: 065
     Dates: start: 20231208
  8. VITAMIN D3 [Concomitant]
     Active Substance: CHOLECALCIFEROL
     Indication: Muscle spasms
     Dosage: UNK
     Route: 065
     Dates: start: 20240205

REACTIONS (7)
  - Chronic obstructive pulmonary disease [Not Recovered/Not Resolved]
  - Muscle spasms [Unknown]
  - Pneumonia [Unknown]
  - Cardiac failure chronic [Unknown]
  - Coronary artery disease [Unknown]
  - Myocardial ischaemia [Unknown]
  - Cardiac dysfunction [Unknown]

NARRATIVE: CASE EVENT DATE: 20240206
